FAERS Safety Report 7581408-2 (Version None)
Quarter: 2011Q2

REPORT INFORMATION
  Report Type: 
  Country: None (occurrence: None)
  Receive Date: 20110629
  Receipt Date: 20110616
  Transmission Date: 20111010
  Serious: Yes (Other)
  Sender: FDA-Public Use
  Company Number: PHHY2011BR53413

PATIENT
  Sex: Male

DRUGS (1)
  1. EXFORGE [Suspect]
     Dosage: 1 DF, UNK

REACTIONS (4)
  - HYPERTENSION [None]
  - HEADACHE [None]
  - EYE DISORDER [None]
  - MALAISE [None]
